FAERS Safety Report 5486124-9 (Version None)
Quarter: 2007Q4

REPORT INFORMATION
  Report Type: 
  Country: None (occurrence: None)
  Receive Date: 20071015
  Receipt Date: 20071004
  Transmission Date: 20080405
  Serious: Yes (Hospitalization, Other)
  Sender: FDA-Public Use
  Company Number: US-PFIZER INC-2006101389

PATIENT
  Sex: Female

DRUGS (15)
  1. CELEBREX [Suspect]
     Indication: ARTHRALGIA
     Route: 048
     Dates: start: 19990301, end: 20011101
  2. CELEBREX [Suspect]
     Indication: OSTEOARTHRITIS
  3. VIOXX [Suspect]
     Indication: ARTHRALGIA
     Route: 048
     Dates: start: 20011101
  4. VIOXX [Suspect]
     Indication: OSTEOARTHRITIS
  5. VICODIN [Concomitant]
     Indication: PAIN
     Dates: start: 20020101, end: 20050401
  6. AMITRIPTYLINE HCL [Concomitant]
     Indication: PAIN
     Dates: start: 20020101, end: 20040924
  7. COZAAR [Concomitant]
     Indication: HYPERTENSION
     Dates: start: 19980611, end: 20030218
  8. COZAAR [Concomitant]
     Indication: DIABETES MELLITUS
  9. CARDIZEM [Concomitant]
     Indication: HYPERTENSION
     Dates: start: 19980401, end: 20050101
  10. CARDIZEM [Concomitant]
     Indication: ANGINA PECTORIS
  11. LASIX [Concomitant]
     Indication: OEDEMA PERIPHERAL
     Dates: start: 19890101, end: 20060101
  12. PLAVIX [Concomitant]
     Indication: CHEST PAIN
     Dates: start: 19990224, end: 20060915
  13. PREMPRO [Concomitant]
     Dates: start: 19850101, end: 20041111
  14. THEOPHYLLINE [Concomitant]
     Indication: DYSPNOEA
     Dates: start: 20000101
  15. K-DUR 10 [Concomitant]
     Indication: HYPOKALAEMIA
     Dates: start: 19980401, end: 20060915

REACTIONS (3)
  - CARDIAC FAILURE CONGESTIVE [None]
  - CARDIOVASCULAR DISORDER [None]
  - MYOCARDIAL INFARCTION [None]
